FAERS Safety Report 9512639 (Version 2)
Quarter: 2014Q2

REPORT INFORMATION
  Report Type: Report from Study
  Country: DK (occurrence: DK)
  Receive Date: 20130910
  Receipt Date: 20140522
  Transmission Date: 20141212
  Serious: Yes (Hospitalization, Other)
  Sender: FDA-Public Use
  Company Number: DK-PFIZER INC-2013257914

PATIENT
  Age: 67 Year
  Sex: Female
  Weight: 54 kg

DRUGS (5)
  1. DOXORUBICIN HCL [Suspect]
     Indication: LEIOMYOSARCOMA METASTATIC
     Dosage: CYCLE 1
     Route: 040
     Dates: start: 20130221, end: 20130221
  2. DOXORUBICIN HCL [Suspect]
     Dosage: 75MG/M2/ 137 MG/ BOLUS/CYCLE 2
     Route: 040
     Dates: start: 20130315, end: 20130315
  3. PANTOPRAZOL [Concomitant]
     Dosage: UNK
     Dates: start: 20130322
  4. MOTILIUM [Concomitant]
     Dosage: UNK
     Dates: start: 20130302
  5. FLUCONAZOL [Concomitant]
     Dosage: UNK
     Dates: start: 20130323, end: 20130401

REACTIONS (1)
  - Deep vein thrombosis [Recovered/Resolved]
